FAERS Safety Report 14958291 (Version 1)
Quarter: 2018Q2

REPORT INFORMATION
  Report Type: Spontaneous
  Country: CA (occurrence: CA)
  Receive Date: 20180531
  Receipt Date: 20180531
  Transmission Date: 20180711
  Serious: Yes (Hospitalization, Other)
  Sender: FDA-Public Use
  Company Number: CA-JNJFOC-20180533337

PATIENT

DRUGS (1)
  1. GOLIMUMAB [Suspect]
     Active Substance: GOLIMUMAB
     Indication: CROHN^S DISEASE
     Route: 058
     Dates: start: 201003, end: 201704

REACTIONS (13)
  - Clostridial infection [Unknown]
  - Pharyngitis [Unknown]
  - Herpes zoster [Unknown]
  - Immune system disorder [Unknown]
  - Psoriasis [Unknown]
  - Fungal infection [Unknown]
  - Injection site reaction [Unknown]
  - Lupus-like syndrome [Unknown]
  - Urinary tract infection [Unknown]
  - Product use in unapproved indication [Unknown]
  - Hypersensitivity [Unknown]
  - Off label use [Unknown]
  - Skin infection [Unknown]
